FAERS Safety Report 12368650 (Version 1)
Quarter: 2016Q2

REPORT INFORMATION
  Report Type: Spontaneous
  Country: US (occurrence: US)
  Receive Date: 20160513
  Receipt Date: 20160513
  Transmission Date: 20160815
  Serious: No
  Sender: FDA-Public Use
  Company Number: US-JNJFOC-20160416318

PATIENT

DRUGS (2)
  1. ROGAINE [Suspect]
     Active Substance: MINOXIDIL
     Indication: PRODUCT USED FOR UNKNOWN INDICATION
     Route: 065
  2. ROGAINE [Suspect]
     Active Substance: MINOXIDIL
     Indication: HAIR GROWTH ABNORMAL
     Route: 065

REACTIONS (6)
  - Cardiac disorder [Unknown]
  - Product use issue [Unknown]
  - Alopecia [Unknown]
  - Drug administered at inappropriate site [Unknown]
  - Therapeutic response unexpected [Unknown]
  - Off label use [Unknown]
